FAERS Safety Report 15241275 (Version 1)
Quarter: 2018Q3

REPORT INFORMATION
  Report Type: Other
  Country: US (occurrence: US)
  Receive Date: 20180805
  Receipt Date: 20180805
  Transmission Date: 20181010
  Serious: Yes (Hospitalization)
  Sender: FDA-Public Use
  Company Number: US-DEXPHARM-20180552

PATIENT
  Age: 74 Year
  Sex: Female

DRUGS (6)
  1. DIFLUCAN [Suspect]
     Active Substance: FLUCONAZOLE
  2. CIPRO [Suspect]
     Active Substance: CIPROFLOXACIN HYDROCHLORIDE
  3. PRILOSEC [Suspect]
     Active Substance: OMEPRAZOLE MAGNESIUM
  4. AMIODARONE [Suspect]
     Active Substance: AMIODARONE
  5. ZOVIRAX [Suspect]
     Active Substance: ACYCLOVIR
  6. ZOLOFT [Suspect]
     Active Substance: SERTRALINE HYDROCHLORIDE

REACTIONS (1)
  - Torsade de pointes [Recovered/Resolved]
